FAERS Safety Report 5444911-7 (Version None)
Quarter: 2007Q3

REPORT INFORMATION
  Report Type: 
  Country: None (occurrence: None)
  Receive Date: 20070906
  Receipt Date: 20070827
  Transmission Date: 20080115
  Serious: Yes (Other)
  Sender: FDA-Public Use
  Company Number: B0463821A

PATIENT
  Age: 56 Year
  Sex: Male
  Weight: 62 kg

DRUGS (5)
  1. AVANDAMET [Suspect]
     Dosage: 2TAB PER DAY
     Route: 048
     Dates: start: 20051201, end: 20070301
  2. TAHOR [Concomitant]
     Route: 065
     Dates: start: 20030101
  3. NEXIUM [Concomitant]
     Route: 065
     Dates: start: 20030101
  4. ANTI HYPERTENSIVE [Concomitant]
     Route: 065
     Dates: start: 20030101
  5. TAREG [Concomitant]
     Route: 065

REACTIONS (3)
  - BLOOD CREATINE PHOSPHOKINASE INCREASED [None]
  - DRUG ADMINISTRATION ERROR [None]
  - MYALGIA [None]
